FAERS Safety Report 22163974 (Version 3)
Quarter: 2023Q2

REPORT INFORMATION
  Report Type: Spontaneous
  Country: US (occurrence: US)
  Receive Date: 20230402
  Receipt Date: 20230515
  Transmission Date: 20230722
  Serious: No
  Sender: FDA-Public Use
  Company Number: US-JNJFOC-20230374102

PATIENT
  Age: 29 Year
  Sex: Female
  Weight: 111.23 kg

DRUGS (5)
  1. TREMFYA [Suspect]
     Active Substance: GUSELKUMAB
     Indication: Psoriasis
     Route: 065
     Dates: start: 202007
  2. PROZAC [Concomitant]
     Active Substance: FLUOXETINE HYDROCHLORIDE
     Indication: Product used for unknown indication
  3. SEROQUEL [Concomitant]
     Active Substance: QUETIAPINE FUMARATE
     Indication: Product used for unknown indication
     Dosage: ONCE AT NIGHT
  4. TRAZODONE [Concomitant]
     Active Substance: TRAZODONE HYDROCHLORIDE
     Indication: Product used for unknown indication
     Dosage: ONCE AT NIGHT
  5. PRAZOSINE [PRAZOSIN] [Concomitant]
     Indication: Product used for unknown indication
     Dosage: ONCE AT NIGHT

REACTIONS (3)
  - Injection site pain [Unknown]
  - Device issue [Unknown]
  - Treatment noncompliance [Unknown]
